FAERS Safety Report 9260121 (Version 4)
Quarter: 2013Q2

REPORT INFORMATION
  Report Type: Spontaneous
  Country: GB (occurrence: GB)
  Receive Date: 20130429
  Receipt Date: 20130624
  Transmission Date: 20140414
  Serious: Yes (Other)
  Sender: FDA-Public Use
  Company Number: GB-JNJFOC-20130413939

PATIENT
  Age: 77 Year
  Sex: Female
  Weight: 70 kg

DRUGS (8)
  1. STELARA [Suspect]
     Indication: PUSTULAR PSORIASIS
     Route: 058
     Dates: start: 20130327, end: 20130327
  2. CYCLOSPORIN [Concomitant]
     Indication: PSORIASIS
     Route: 048
     Dates: start: 20130214
  3. CYCLOSPORIN [Concomitant]
     Indication: PSORIASIS
     Route: 048
     Dates: start: 201101
  4. AMLODIPINE [Concomitant]
     Indication: HYPERTENSION
     Route: 065
     Dates: start: 20110327
  5. AMLODIPINE [Concomitant]
     Indication: HYPERTENSION
     Dosage: INITIATED 4 YEARS AGO
     Route: 065
  6. FOLIC ACID [Concomitant]
     Route: 065
  7. FOLIC ACID [Concomitant]
     Route: 065
     Dates: start: 20060913
  8. VITAMIN B 12 [Concomitant]
     Route: 065
     Dates: start: 20060913

REACTIONS (2)
  - Pustular psoriasis [Recovered/Resolved]
  - Off label use [Unknown]
